FAERS Safety Report 6911138-9 (Version None)
Quarter: 2010Q3

REPORT INFORMATION
  Report Type: 
  Country: None (occurrence: None)
  Receive Date: 20100806
  Receipt Date: 20100413
  Transmission Date: 20110219
  Serious: Yes (Other)
  Sender: FDA-Public Use
  Company Number: ZA-MERCK-1004ZAF00036

PATIENT
  Age: 67 Year
  Sex: Female

DRUGS (1)
  1. SINEMET [Suspect]
     Indication: PARKINSON'S DISEASE
     Route: 048
     Dates: start: 20100410, end: 20100410

REACTIONS (3)
  - ADVERSE EVENT [None]
  - CONVULSION [None]
  - VISION BLURRED [None]
